FAERS Safety Report 6100105-3 (Version None)
Quarter: 2009Q1

REPORT INFORMATION
  Report Type: 
  Country: None (occurrence: None)
  Receive Date: 20090303
  Receipt Date: 20090224
  Transmission Date: 20090719
  Serious: Yes (Disabling)
  Sender: FDA-Public Use
  Company Number: DE-AVENTIS-200910397DE

PATIENT
  Age: 79 Year
  Sex: Male
  Weight: 62 kg

DRUGS (6)
  1. CLEXANE [Suspect]
     Indication: THROMBOPHLEBITIS
     Route: 058
     Dates: start: 20090115, end: 20090125
  2. CLEXANE [Suspect]
     Route: 058
     Dates: start: 20090127, end: 20090222
  3. CONCOR                             /00802602/ [Concomitant]
     Indication: HYPERTENSION
     Dosage: DOSE: 1X1
     Route: 048
  4. CONCOR                             /00802602/ [Concomitant]
     Indication: EXTRASYSTOLES
     Dosage: DOSE: 1X1
     Route: 048
  5. TALSO UNO [Concomitant]
     Dosage: DOSE: 1X1
     Route: 048
  6. SIMVASTATIN [Concomitant]
     Dosage: DOSE: 1X1/2
     Route: 048

REACTIONS (1)
  - HYPERAESTHESIA [None]
